FAERS Safety Report 5389238-7 (Version None)
Quarter: 2007Q3

REPORT INFORMATION
  Report Type: 
  Country: None (occurrence: None)
  Receive Date: 20070717
  Receipt Date: 20070716
  Transmission Date: 20080115
  Serious: Yes (Hospitalization, Other)
  Sender: FDA-Public Use
  Company Number: A0662553A

PATIENT
  Age: 50 Year
  Sex: Male
  Weight: 79.1 kg

DRUGS (2)
  1. AVANDAMET [Suspect]
     Dosage: 1TAB TWICE PER DAY
     Route: 048
     Dates: start: 20060118
  2. BLOOD PRESSURE MEDICATION [Concomitant]

REACTIONS (7)
  - CHEST PAIN [None]
  - CORONARY ARTERY BYPASS [None]
  - CORONARY ARTERY DISEASE [None]
  - HYPERHIDROSIS [None]
  - NECK PAIN [None]
  - PAIN [None]
  - PAIN IN JAW [None]
